FAERS Safety Report 6686709-8 (Version None)
Quarter: 2010Q2

REPORT INFORMATION
  Report Type: 
  Country: None (occurrence: None)
  Receive Date: 20100416
  Receipt Date: 20100416
  Transmission Date: 20101027
  Serious: Yes (Death)
  Sender: FDA-Public Use
  Company Number: None

PATIENT
  Sex: Male
  Weight: 54.55 kg

DRUGS (2)
  1. VIMPAT [Suspect]
     Indication: EPILEPSY
     Dosage: 150 MG TWICE DAILY BY MOUTH
     Route: 048
     Dates: start: 20100212, end: 20100405
  2. DILANTIN [Suspect]

REACTIONS (2)
  - CONVULSION [None]
  - SUDDEN DEATH [None]
